FAERS Safety Report 7832332-9 (Version None)
Quarter: 2011Q4

REPORT INFORMATION
  Report Type: 
  Country: None (occurrence: None)
  Receive Date: 20111022
  Receipt Date: 20111008
  Transmission Date: 20120403
  Serious: Yes (Hospitalization)
  Sender: FDA-Public Use
  Company Number: US-BAYER-2011-037464

PATIENT
  Age: 19 Year
  Sex: Female
  Weight: 61.224 kg

DRUGS (17)
  1. PIROXICAM [Concomitant]
     Indication: JUVENILE ARTHRITIS
     Dosage: 25 MG, QD
     Route: 048
     Dates: start: 19910101
  2. ENBREL [Concomitant]
     Indication: JUVENILE ARTHRITIS
     Dosage: UNK
     Dates: start: 20040101, end: 20090101
  3. FOLIC ACID [Concomitant]
     Dosage: 1 MG, QD
     Route: 048
  4. VIRAL VACCINES [Concomitant]
     Dosage: UNK
     Dates: start: 20090101
  5. PREDNISOLONE [Concomitant]
  6. AZITHROMYCIN [Concomitant]
  7. PENICILLIN [Concomitant]
  8. VITAMIN D [Concomitant]
     Dosage: 400 IU, UNK
     Route: 048
  9. ZITHROMAX [Concomitant]
     Dosage: UNK
  10. PEPCID [Concomitant]
     Dosage: 20 MG, UNK
     Route: 048
  11. CALCIUM CARBONATE [Concomitant]
     Dosage: 500 MG, BID
     Route: 048
  12. YAZ [Suspect]
     Indication: OVARIAN CYST
     Dosage: UNK
     Route: 048
     Dates: start: 20090101, end: 20090301
  13. NAPROSYN [Concomitant]
     Dosage: UNK
     Dates: start: 19910101
  14. METHOTREXATE [Concomitant]
     Indication: JUVENILE ARTHRITIS
     Dosage: UNK
     Dates: start: 20000101, end: 20090101
  15. COLACE [Concomitant]
     Dosage: 100 MG, BID
     Route: 048
  16. ANTIBIOTICS [Concomitant]
  17. FELDENE [Concomitant]

REACTIONS (4)
  - OPHTHALMOPLEGIA [None]
  - VITH NERVE PARALYSIS [None]
  - DIPLOPIA [None]
  - CAVERNOUS SINUS THROMBOSIS [None]
